FAERS Safety Report 20650678 (Version 1)
Quarter: 2022Q1

REPORT INFORMATION
  Report Type: Report from Study
  Country: US (occurrence: US)
  Receive Date: 20220329
  Receipt Date: 20220329
  Transmission Date: 20220423
  Serious: Yes (Life-Threatening, Hospitalization, Other)
  Sender: FDA-Public Use
  Company Number: US-BRISTOL-MYERS SQUIBB COMPANY-2022-010946

PATIENT
  Age: 81 Year
  Sex: Female
  Weight: 74.9 kg

DRUGS (15)
  1. REVLIMID [Suspect]
     Active Substance: LENALIDOMIDE
     Indication: Plasma cell myeloma
     Route: 048
     Dates: start: 20140124, end: 20190109
  2. VELCADE [Suspect]
     Active Substance: BORTEZOMIB
     Dosage: 2X WEEKLY, DAYS 1 AND 4 Q 7D, 1 WK OFF Q 14D.
     Route: 058
     Dates: start: 20130617, end: 20130822
  3. VELCADE [Suspect]
     Active Substance: BORTEZOMIB
     Dosage: 1X WEEKLY, NO REST PERIOD: DAY 1 Q 7D
     Route: 058
     Dates: start: 20130916, end: 20130916
  4. CYTOXAN [Suspect]
     Active Substance: CYCLOPHOSPHAMIDE
     Route: 048
     Dates: start: 20130617, end: 20130822
  5. DEXAMETHASONE [Suspect]
     Active Substance: DEXAMETHASONE
     Route: 048
     Dates: start: 20130617, end: 20130822
  6. DEXAMETHASONE [Suspect]
     Active Substance: DEXAMETHASONE
     Dosage: IV 1,8,15, PO DAY 22.
     Dates: start: 20190110, end: 20190524
  7. DEXAMETHASONE [Suspect]
     Active Substance: DEXAMETHASONE
     Route: 042
     Dates: start: 20190620, end: 20190830
  8. DEXAMETHASONE [Suspect]
     Active Substance: DEXAMETHASONE
     Route: 042
     Dates: start: 20190927, end: 20200108
  9. DEXAMETHASONE [Suspect]
     Active Substance: DEXAMETHASONE
     Route: 048
     Dates: start: 20200108, end: 20200304
  10. DEXAMETHASONE [Suspect]
     Active Substance: DEXAMETHASONE
     Route: 048
     Dates: start: 20190620, end: 20210310
  11. PREDNISONE [Suspect]
     Active Substance: PREDNISONE
     Route: 048
     Dates: start: 20140124, end: 20190109
  12. KYPROLIS [Suspect]
     Active Substance: CARFILZOMIB
     Route: 042
     Dates: start: 20190101, end: 20190524
  13. DARZALEX [Suspect]
     Active Substance: DARATUMUMAB
     Route: 042
     Dates: start: 20190620, end: 20190830
  14. DARZALEX [Suspect]
     Active Substance: DARATUMUMAB
     Route: 042
     Dates: start: 20190927, end: 20200103
  15. DARZALEX [Suspect]
     Active Substance: DARATUMUMAB
     Route: 042
     Dates: start: 20190620, end: 20200206

REACTIONS (4)
  - Pneumonia [Not Recovered/Not Resolved]
  - Hypoxia [Not Recovered/Not Resolved]
  - Urinary tract infection [Unknown]
  - Mental status changes [Unknown]

NARRATIVE: CASE EVENT DATE: 20220314
